FAERS Safety Report 6860083-6 (Version None)
Quarter: 2010Q3

REPORT INFORMATION
  Report Type: 
  Country: None (occurrence: None)
  Receive Date: 20100720
  Receipt Date: 20100715
  Transmission Date: 20110219
  Serious: Yes (Hospitalization)
  Sender: FDA-Public Use
  Company Number: MX-BRISTOL-MYERS SQUIBB COMPANY-15195852

PATIENT
  Age: 38 Year
  Sex: Female

DRUGS (4)
  1. ABATACEPT [Suspect]
     Indication: RHEUMATOID ARTHRITIS
     Dosage: 1 DOSAGE FORM: 125 MG/ML
     Route: 058
     Dates: start: 20081007
  2. METHOTREXATE [Suspect]
     Indication: RHEUMATOID ARTHRITIS
     Dates: start: 20091005
  3. FOLIC ACID [Concomitant]
     Dates: start: 20070101
  4. DICLOFENAC [Concomitant]
     Dates: start: 20070101

REACTIONS (1)
  - APPENDICITIS [None]
